FAERS Safety Report 8578241-1 (Version None)
Quarter: 2012Q3

REPORT INFORMATION
  Report Type: 
  Country: None (occurrence: None)
  Receive Date: 20120808
  Receipt Date: 20120801
  Transmission Date: 20120928
  Serious: No
  Sender: FDA-Public Use
  Company Number: US-PFIZER INC-2012187485

PATIENT
  Age: 77 Year
  Sex: Female
  Weight: 65 kg

DRUGS (1)
  1. DETROL [Suspect]
     Indication: BLADDER DISORDER
     Dosage: 2 MG, 1X/DAY
     Route: 048
     Dates: start: 20120601, end: 20120731

REACTIONS (1)
  - OEDEMA PERIPHERAL [None]
